FAERS Safety Report 12759335 (Version 1)
Quarter: 2016Q3

REPORT INFORMATION
  Report Type: Spontaneous
  Country: FR (occurrence: FR)
  Receive Date: 20160919
  Receipt Date: 20160919
  Transmission Date: 20161109
  Serious: Yes (Hospitalization)
  Sender: FDA-Public Use
  Company Number: FR-PACIRA PHARMACEUTICALS, INC.-2016DEPFR00688

PATIENT
  Age: 68 Year
  Sex: Male

DRUGS (10)
  1. VESANOID [Concomitant]
     Active Substance: TRETINOIN
     Dosage: 11 INTRATHECAL INJECTIONS (NOT FURTHER SPECIFIED)
     Route: 037
  2. AMIKLIN [Concomitant]
     Active Substance: AMIKACIN SULFATE
     Indication: SEPSIS
     Dosage: UNK UNK, UNK
     Route: 065
  3. CEFEPIME [Concomitant]
     Active Substance: CEFEPIME HYDROCHLORIDE
     Indication: SEPSIS
     Dosage: UNK UNK, UNK
     Route: 065
     Dates: start: 20160808, end: 20160820
  4. DEPOCYT [Suspect]
     Active Substance: CYTARABINE
     Indication: METASTASES TO MENINGES
     Dosage: 50 MG, 1X
     Route: 037
     Dates: start: 20160729, end: 20160729
  5. DEPOCYT [Suspect]
     Active Substance: CYTARABINE
     Dosage: UNK UNK, 1X
     Route: 037
     Dates: end: 20160729
  6. TRISENOX [Concomitant]
     Active Substance: ARSENIC TRIOXIDE
     Dosage: 11 INTRATHECAL INJECTIONS (NOT FURTHER SPECIFIED)
     Route: 037
  7. VESANOID [Concomitant]
     Active Substance: TRETINOIN
     Indication: METASTASES TO MENINGES
     Dosage: 90 MG, DAILY
     Route: 048
     Dates: start: 20160822, end: 20160905
  8. TRISENOX [Concomitant]
     Active Substance: ARSENIC TRIOXIDE
     Indication: METASTASES TO MENINGES
     Dosage: 12.5 MG, DAILY
     Dates: start: 20160822
  9. TAZOCILLINE [Concomitant]
     Active Substance: PIPERACILLIN SODIUM\TAZOBACTAM SODIUM
     Indication: SEPSIS
     Dosage: UNK UNK, UNK
     Route: 065
  10. MANNITOL. [Concomitant]
     Active Substance: MANNITOL
     Dosage: 125 ML, DAILY
     Dates: start: 20160822

REACTIONS (5)
  - Micturition disorder [Not Recovered/Not Resolved]
  - Neuropathy peripheral [Not Recovered/Not Resolved]
  - Dysaesthesia [Not Recovered/Not Resolved]
  - Orthostatic hypotension [Not Recovered/Not Resolved]
  - Constipation [Not Recovered/Not Resolved]

NARRATIVE: CASE EVENT DATE: 201608
